FAERS Safety Report 11467773 (Version 1)
Quarter: 2015Q3

REPORT INFORMATION
  Report Type: Spontaneous
  Country: US (occurrence: None)
  Receive Date: 20150904
  Receipt Date: 20150904
  Transmission Date: 20151125
  Serious: Yes (Hospitalization)
  Sender: FDA-Public Use
  Company Number: None

PATIENT
  Age: 20 Year
  Sex: Female

DRUGS (4)
  1. COLOTHIN [Concomitant]
     Active Substance: UNSPECIFIED INGREDIENT
  2. LO LOESTRIN FE [Suspect]
     Active Substance: ETHINYL ESTRADIOL\NORETHINDRONE ACETATE
     Indication: VAGINAL HAEMORRHAGE
     Dates: start: 20130914, end: 20131016
  3. FLOWLESS RASPBERRY KETONE [Concomitant]
  4. TRISLIM [Concomitant]

REACTIONS (10)
  - Abdominal pain upper [None]
  - Cholelithiasis [None]
  - Pruritus [None]
  - Blood bilirubin increased [None]
  - Nausea [None]
  - Hepatic enzyme increased [None]
  - Portal fibrosis [None]
  - Disease recurrence [None]
  - Cholestasis [None]
  - Liver injury [None]

NARRATIVE: CASE EVENT DATE: 20131119
